FAERS Safety Report 18468597 (Version 3)
Quarter: 2021Q4

REPORT INFORMATION
  Report Type: Spontaneous
  Country: US (occurrence: None)
  Receive Date: 20201105
  Receipt Date: 20211210
  Transmission Date: 20220304
  Serious: Yes (Death, Other)
  Sender: FDA-Public Use
  Company Number: 2020SF43697

PATIENT
  Age: 23301 Day
  Sex: Female
  Weight: 70.5 kg

DRUGS (43)
  1. NEXIUM [Suspect]
     Active Substance: ESOMEPRAZOLE MAGNESIUM
     Indication: Gastrooesophageal reflux disease
     Route: 048
     Dates: start: 199001, end: 201712
  2. NEXIUM [Suspect]
     Active Substance: ESOMEPRAZOLE MAGNESIUM
     Indication: Gastrooesophageal reflux disease
     Route: 048
     Dates: start: 2001, end: 2017
  3. PRILOSEC [Suspect]
     Active Substance: OMEPRAZOLE MAGNESIUM
     Indication: Gastrooesophageal reflux disease
     Route: 048
     Dates: start: 199001, end: 201712
  4. PRILOSEC [Suspect]
     Active Substance: OMEPRAZOLE MAGNESIUM
     Indication: Gastrooesophageal reflux disease
     Route: 048
     Dates: start: 1990, end: 2017
  5. PREVACID [Suspect]
     Active Substance: LANSOPRAZOLE
     Indication: Gastrooesophageal reflux disease
     Route: 065
     Dates: start: 199001, end: 201712
  6. PREVACID [Suspect]
     Active Substance: LANSOPRAZOLE
     Indication: Gastrooesophageal reflux disease
     Route: 065
     Dates: start: 1995, end: 2017
  7. PROTONIX [Suspect]
     Active Substance: PANTOPRAZOLE SODIUM
     Indication: Gastrooesophageal reflux disease
     Route: 065
     Dates: start: 2000, end: 2017
  8. PROTONIX [Suspect]
     Active Substance: PANTOPRAZOLE SODIUM
     Indication: Gastrooesophageal reflux disease
     Dosage: GENERIC
     Route: 065
     Dates: start: 2017, end: 2019
  9. CARDIZEM [Concomitant]
     Active Substance: DILTIAZEM HYDROCHLORIDE
  10. KLONOPIN [Concomitant]
     Active Substance: CLONAZEPAM
  11. ASPIRIN [Concomitant]
     Active Substance: ASPIRIN
  12. CRESTOR [Concomitant]
     Active Substance: ROSUVASTATIN CALCIUM
  13. TRAZODONE [Concomitant]
     Active Substance: TRAZODONE HYDROCHLORIDE
  14. DUONEB [Concomitant]
     Active Substance: ALBUTEROL SULFATE\IPRATROPIUM BROMIDE
  15. VASCEPA [Concomitant]
     Active Substance: ICOSAPENT ETHYL
  16. FOSAMAX [Concomitant]
     Active Substance: ALENDRONATE SODIUM
  17. LYRICA [Concomitant]
     Active Substance: PREGABALIN
  18. LANTUS [Concomitant]
     Active Substance: INSULIN GLARGINE
  19. FLONASE [Concomitant]
     Active Substance: FLUTICASONE PROPIONATE
  20. TRADJENTA [Concomitant]
     Active Substance: LINAGLIPTIN
  21. RENVELA [Concomitant]
     Active Substance: SEVELAMER CARBONATE
  22. SINGULAIR [Concomitant]
     Active Substance: MONTELUKAST SODIUM
  23. VANCOMYCIN [Concomitant]
     Active Substance: VANCOMYCIN
  24. ZOLOFT [Concomitant]
     Active Substance: SERTRALINE HYDROCHLORIDE
  25. RESPIMAT [Concomitant]
  26. OSCAL [Concomitant]
     Active Substance: CALCIUM CARBONATE
  27. COUMADIN [Concomitant]
     Active Substance: WARFARIN SODIUM
  28. POTASSIUM CHLORIDE [Concomitant]
     Active Substance: POTASSIUM CHLORIDE
  29. TYLENOL [Concomitant]
     Active Substance: ACETAMINOPHEN
  30. JARDIANCE [Concomitant]
     Active Substance: EMPAGLIFLOZIN
  31. LASIX [Concomitant]
     Active Substance: FUROSEMIDE
  32. IMDUR [Concomitant]
     Active Substance: ISOSORBIDE MONONITRATE
  33. JANUVIA [Concomitant]
     Active Substance: SITAGLIPTIN PHOSPHATE
  34. SERTRALINE [Concomitant]
     Active Substance: SERTRALINE HYDROCHLORIDE
  35. NORVASC [Concomitant]
     Active Substance: AMLODIPINE BESYLATE
  36. VITAMIN D2 [Concomitant]
     Active Substance: ERGOCALCIFEROL
  37. HUMALOG [Concomitant]
     Active Substance: INSULIN LISPRO
  38. NITROSTAT [Concomitant]
     Active Substance: NITROGLYCERIN
  39. HYDRALAZINE [Concomitant]
     Active Substance: HYDRALAZINE HYDROCHLORIDE
  40. DETROL [Concomitant]
     Active Substance: TOLTERODINE TARTRATE
  41. CLONAZEPAM [Concomitant]
     Active Substance: CLONAZEPAM
  42. PROVENTIL HFA [Concomitant]
     Active Substance: ALBUTEROL SULFATE
  43. IBUPROFEN [Concomitant]
     Active Substance: IBUPROFEN
     Indication: Pain

REACTIONS (6)
  - Death [Fatal]
  - Acute kidney injury [Unknown]
  - Chronic kidney disease [Unknown]
  - End stage renal disease [Unknown]
  - Renal failure [Unknown]
  - Nephrogenic anaemia [Unknown]

NARRATIVE: CASE EVENT DATE: 20160529
